FAERS Safety Report 5663342-8 (Version None)
Quarter: 2008Q1

REPORT INFORMATION
  Report Type: 
  Country: None (occurrence: None)
  Receive Date: 20080313
  Receipt Date: 20080306
  Transmission Date: 20080703
  Serious: Yes (Hospitalization)
  Sender: FDA-Public Use
  Company Number: TR-ELI_LILLY_AND_COMPANY-TR200803001886

PATIENT
  Sex: Female
  Weight: 68 kg

DRUGS (14)
  1. HUMALOG MIX 75/25 [Suspect]
     Indication: TYPE 2 DIABETES MELLITUS
     Dosage: 14 UNITS IN THE MORNING
     Route: 058
     Dates: start: 20080118
  2. HUMALOG MIX 75/25 [Suspect]
     Dosage: 10 U, EACH EVENING
     Route: 058
     Dates: start: 20080118
  3. GLUCOPHAGE [Concomitant]
     Indication: TYPE 2 DIABETES MELLITUS
     Dosage: 1/MORNING, 1/NOON AND 1/EVENING
     Route: 048
  4. AMLODIPINE [Concomitant]
     Indication: HYPERTENSION
     Dosage: 1 TABLET AT NOON
     Route: 048
  5. DILTIZEM [Concomitant]
     Indication: CARDIOVASCULAR DISORDER
     Dosage: 1/MORNING AND 1/EVENING
     Route: 048
  6. ALDACTONE [Concomitant]
     Indication: OEDEMA
     Dosage: 1/NIGHT
     Route: 048
  7. LASIX [Concomitant]
     Dosage: 40 MG, DAILY (1/D)
     Route: 048
  8. THEOPHYLLINE [Concomitant]
     Dosage: 1/NIGHT
     Route: 048
  9. LANSOPRAZOLE [Concomitant]
     Indication: GASTRIC DISORDER
     Dosage: 1/NIGHT
     Route: 048
  10. PANTO [Concomitant]
     Indication: GASTRIC DISORDER
     Dosage: 40 MG, DAILY (1/D)
     Route: 048
  11. BENEXOL [Concomitant]
     Dosage: 1/NIGHT
     Route: 048
  12. CORASPIN [Concomitant]
     Dosage: 1/NIGHT
     Route: 048
  13. METPAMID [Concomitant]
     Indication: NAUSEA
     Dosage: 1/NIGHT
     Route: 048
  14. COMBIVENT [Concomitant]
     Dosage: UNK, 2/D
     Route: 055

REACTIONS (2)
  - ANGIOGRAM [None]
  - VASCULAR GRAFT [None]
